FAERS Safety Report 18146016 (Version 2)
Quarter: 2020Q4

REPORT INFORMATION
  Report Type: Report from Study
  Country: IT (occurrence: IT)
  Receive Date: 20200813
  Receipt Date: 20201022
  Transmission Date: 20210113
  Serious: Yes (Hospitalization)
  Sender: FDA-Public Use
  Company Number: IT-PFIZER INC-2020307967

PATIENT
  Age: 71 Year
  Sex: Male

DRUGS (2)
  1. CYTARABINE. [Suspect]
     Active Substance: CYTARABINE
     Indication: CENTRAL NERVOUS SYSTEM LYMPHOMA
     Dosage: 4000 MG, CYCLIC
     Route: 042
  2. METHOTREXATE SODIUM. [Suspect]
     Active Substance: METHOTREXATE SODIUM
     Indication: CENTRAL NERVOUS SYSTEM LYMPHOMA
     Dosage: 3500 MG, CYCLIC
     Route: 042

REACTIONS (3)
  - Pneumonitis [Recovering/Resolving]
  - Febrile neutropenia [Recovering/Resolving]
  - Ileus paralytic [Recovering/Resolving]

NARRATIVE: CASE EVENT DATE: 20200401
